FAERS Safety Report 15120166 (Version 1)
Quarter: 2018Q3

REPORT INFORMATION
  Report Type: Spontaneous
  Country: US (occurrence: US)
  Receive Date: 20180613
  Receipt Date: 20180613
  Transmission Date: 20181010
  Serious: Yes (Hospitalization)
  Sender: FDA-Public Use
  Company Number: None

PATIENT
  Age: 77 Year
  Sex: Male
  Weight: 83.55 kg

DRUGS (3)
  1. ENOXAPARIN [Suspect]
     Active Substance: ENOXAPARIN
     Indication: PULMONARY EMBOLISM
     Route: 058
     Dates: start: 20150417
  2. ENOXAPARIN [Suspect]
     Active Substance: ENOXAPARIN
     Indication: CEREBROVASCULAR ACCIDENT
  3. ENOXAPARIN [Suspect]
     Active Substance: ENOXAPARIN
     Indication: COLORECTAL CANCER

REACTIONS (7)
  - Asthenia [None]
  - Gastrointestinal haemorrhage [None]
  - Epistaxis [None]
  - Dehydration [None]
  - Dizziness [None]
  - Melaena [None]
  - Rectal haemorrhage [None]

NARRATIVE: CASE EVENT DATE: 20180420
